FAERS Safety Report 19209523 (Version 1)
Quarter: 2021Q2

REPORT INFORMATION
  Report Type: Spontaneous
  Country: CN (occurrence: CN)
  Receive Date: 20210504
  Receipt Date: 20210504
  Transmission Date: 20210717
  Serious: Yes (Hospitalization, Other)
  Sender: FDA-Public Use
  Company Number: CN-JNJFOC-20210452891

PATIENT
  Age: 78 Year
  Sex: Male
  Weight: 70 kg

DRUGS (1)
  1. XARELTO [Suspect]
     Active Substance: RIVAROXABAN
     Indication: DEEP VEIN THROMBOSIS
     Dosage: 10 MG, QD
     Route: 048
     Dates: start: 20210403, end: 20210409

REACTIONS (10)
  - White blood cell count decreased [Recovered/Resolved]
  - Product prescribing issue [Unknown]
  - Eosinophil count decreased [Unknown]
  - Monocyte count decreased [Unknown]
  - Platelet count decreased [Recovered/Resolved]
  - Haemoglobin decreased [Recovered/Resolved]
  - Red blood cell count decreased [Recovered/Resolved]
  - Granulocyte count decreased [Unknown]
  - Incorrect dose administered [Unknown]
  - Lymphocyte percentage increased [Recovered/Resolved]

NARRATIVE: CASE EVENT DATE: 20210403
